FAERS Safety Report 5714205-0 (Version None)
Quarter: 2008Q2

REPORT INFORMATION
  Report Type: 
  Country: None (occurrence: None)
  Receive Date: 20080423
  Receipt Date: 20071102
  Transmission Date: 20081010
  Serious: No
  Sender: FDA-Public Use
  Company Number: US-KINGPHARMUSA00001-K200701423

PATIENT

DRUGS (8)
  1. SKELAXIN [Suspect]
     Indication: BACK PAIN
     Dosage: 800 MG, 3- 4 TIMES A DAY AS NEEDED
     Route: 048
     Dates: start: 20071101
  2. SKELAXIN [Suspect]
     Indication: MUSCLE SPASMS
     Dosage: 400 MG, (1/2 OF 800 MG TABLET IN A.M.)
     Route: 048
     Dates: start: 20071102, end: 20071102
  3. SKELAXIN [Suspect]
     Dosage: 400 MG, (1/2 OF 800 MG TABLET AT LUNCH TIME)
     Route: 048
     Dates: start: 20071102, end: 20071102
  4. MORPHINE EPIDURAL [Concomitant]
     Indication: PAIN
  5. ULTRAM [Concomitant]
     Indication: PAIN
     Dosage: UNK, PRN
  6. SIMVASTATIN [Concomitant]
     Indication: BLOOD CHOLESTEROL
  7. LANSOPRAZOLE [Concomitant]
     Indication: STOMACH DISCOMFORT
  8. SORINE [Concomitant]
     Indication: CARDIAC DISORDER

REACTIONS (2)
  - DRUG ADMINISTRATION ERROR [None]
  - RETCHING [None]
